FAERS Safety Report 8127082-8 (Version None)
Quarter: 2012Q1

REPORT INFORMATION
  Report Type: 
  Country: None (occurrence: None)
  Receive Date: 20120210
  Receipt Date: 20120206
  Transmission Date: 20120608
  Serious: No
  Sender: FDA-Public Use
  Company Number: CA-JNJFOC-20120203393

PATIENT
  Sex: Female
  Weight: 65 kg

DRUGS (8)
  1. CITALOPRAM HYDROBROMIDE [Concomitant]
     Route: 065
  2. ASACOL [Concomitant]
     Route: 065
  3. VITAMIN D [Concomitant]
     Route: 065
  4. REMICADE [Suspect]
     Indication: COLITIS ULCERATIVE
     Dosage: DOSAGE AND FREQUENCY UNSPECIFIED
     Route: 042
  5. PRILOSEC [Concomitant]
     Route: 065
  6. REMICADE [Suspect]
     Route: 042
     Dates: start: 20110827
  7. CALCIUM [Concomitant]
     Route: 065
  8. MULTI-VITAMINS [Concomitant]
     Route: 065

REACTIONS (1)
  - FUNGAL INFECTION [None]
